FAERS Safety Report 5066287-X (Version None)
Quarter: 2006Q3

REPORT INFORMATION
  Report Type: 
  Country: None (occurrence: None)
  Receive Date: 20060731
  Receipt Date: 20060731
  Transmission Date: 20061208
  Serious: Yes (Life-Threatening, Hospitalization, Disabling)
  Sender: FDA-Public Use
  Company Number: None

PATIENT
  Age: 48 Year
  Sex: Female
  Weight: 63.5 kg

DRUGS (1)
  1. DROTRECOGIN ALFA 10 VIAL -MIXED LILLY BY RX IN 100 ML [Suspect]
     Indication: UROSEPSIS
     Dosage: 24 MCG/KG/HOUR IV CONTINUOUS IV DRIP
     Route: 041
     Dates: start: 20060725, end: 20060727

REACTIONS (1)
  - HAEMORRHAGE [None]
